FAERS Safety Report 25981880 (Version 1)
Quarter: 2025Q4

REPORT INFORMATION
  Report Type: Spontaneous
  Country: EU (occurrence: None)
  Receive Date: 20251031
  Receipt Date: 20251031
  Transmission Date: 20260117
  Serious: Yes (Hospitalization)
  Sender: ENDO
  Company Number: EU-ENDO USA, INC.-2025-001906

PATIENT
  Sex: Female

DRUGS (2)
  1. AVEED [Suspect]
     Active Substance: TESTOSTERONE UNDECANOATE
     Indication: Gender reassignment therapy
     Dosage: 250 MILLIGRAM, BIWEEKLY (EVERY 2 WEEKS FOR 6 MONTHS)
  2. AVEED [Suspect]
     Active Substance: TESTOSTERONE UNDECANOATE
     Dosage: 250 MILLIGRAM, EVERY 3 WEEKS

REACTIONS (3)
  - Myocarditis [Recovered/Resolved]
  - Ventricular hypokinesia [Recovered/Resolved]
  - Off label use [Not Recovered/Not Resolved]
